FAERS Safety Report 17062838 (Version 1)
Quarter: 2019Q4

REPORT INFORMATION
  Report Type: Spontaneous
  Country: GB (occurrence: GB)
  Receive Date: 20191122
  Receipt Date: 20191122
  Transmission Date: 20200122
  Serious: Yes (Other)
  Sender: FDA-Public Use
  Company Number: GB-TEVA-2019-GB-1139650

PATIENT
  Age: 85 Year
  Sex: Male
  Weight: 65.31 kg

DRUGS (4)
  1. VENTOLIN [Concomitant]
     Active Substance: ALBUTEROL SULFATE
  2. FLIXONASE [Concomitant]
     Active Substance: FLUTICASONE PROPIONATE
  3. FOLIC ACID. [Suspect]
     Active Substance: FOLIC ACID
     Indication: PERNICIOUS ANAEMIA
     Dosage: 5 MG
     Route: 048
     Dates: start: 20180727, end: 20180727
  4. BETNOVATE [Concomitant]
     Active Substance: BETAMETHASONE

REACTIONS (5)
  - Arthralgia [Not Recovered/Not Resolved]
  - Pharyngeal swelling [Not Recovered/Not Resolved]
  - Feeling hot [Not Recovered/Not Resolved]
  - Productive cough [Not Recovered/Not Resolved]
  - Dysphagia [Not Recovered/Not Resolved]

NARRATIVE: CASE EVENT DATE: 20180728
